FAERS Safety Report 24611299 (Version 1)
Quarter: 2024Q4

REPORT INFORMATION
  Report Type: Report from Study
  Country: JP (occurrence: JP)
  Receive Date: 20241113
  Receipt Date: 20241113
  Transmission Date: 20250114
  Serious: Yes (Other)
  Sender: JOHNSON AND JOHNSON
  Company Number: JP-JNJFOC-20240613361

PATIENT
  Age: 86 Year
  Sex: Male
  Weight: 54 kg

DRUGS (2)
  1. ERLEADA [Suspect]
     Active Substance: APALUTAMIDE
     Indication: Prostate cancer metastatic
     Route: 048
     Dates: start: 20240524
  2. LEUPLIN [Concomitant]
     Active Substance: LEUPROLIDE ACETATE
     Indication: Prostate cancer metastatic
     Dosage: DOSE UNKNOWN
     Route: 058
     Dates: start: 20240606

REACTIONS (14)
  - Haematochezia [Recovered/Resolved]
  - Malaise [Not Recovered/Not Resolved]
  - Lymphadenopathy [Not Recovered/Not Resolved]
  - Fatigue [Recovered/Resolved]
  - Feeling abnormal [Recovered/Resolved]
  - Head discomfort [Not Recovered/Not Resolved]
  - Weight decreased [Not Recovered/Not Resolved]
  - Blood pressure increased [Not Recovered/Not Resolved]
  - Erythema [Recovering/Resolving]
  - Hypoaesthesia [Unknown]
  - Muscular weakness [Not Recovered/Not Resolved]
  - Testosterone deficiency syndrome [Not Recovered/Not Resolved]
  - Prostatic specific antigen increased [Not Recovered/Not Resolved]
  - Dental care [Recovered/Resolved]

NARRATIVE: CASE EVENT DATE: 20240101
